FAERS Safety Report 17521382 (Version 1)
Quarter: 2020Q1

REPORT INFORMATION
  Report Type: Spontaneous
  Country: US (occurrence: US)
  Receive Date: 20200310
  Receipt Date: 20200310
  Transmission Date: 20200409
  Serious: Yes (Hospitalization)
  Sender: FDA-Public Use
  Company Number: US-ALEXION-A202002883

PATIENT
  Age: 77 Year
  Sex: Female

DRUGS (2)
  1. SOLIRIS [Suspect]
     Active Substance: ECULIZUMAB
     Indication: MYASTHENIA GRAVIS
     Dosage: 1200 MG, UNK
     Route: 042
  2. SOLIRIS [Suspect]
     Active Substance: ECULIZUMAB
     Dosage: 2400 MG, SINGLE
     Route: 042
     Dates: start: 202002

REACTIONS (6)
  - Accidental overdose [Unknown]
  - Confusional state [Unknown]
  - Musculoskeletal pain [Unknown]
  - Memory impairment [Unknown]
  - Laboratory test abnormal [Unknown]
  - Condition aggravated [Unknown]

NARRATIVE: CASE EVENT DATE: 202002
